FAERS Safety Report 16820738 (Version 4)
Quarter: 2020Q1

REPORT INFORMATION
  Report Type: Spontaneous
  Country: US (occurrence: US)
  Receive Date: 20190918
  Receipt Date: 20200206
  Transmission Date: 20200409
  Serious: Yes (Other)
  Sender: FDA-Public Use
  Company Number: US-ASTRAZENECA-2019SE10066

PATIENT
  Age: 45 Year
  Sex: Female

DRUGS (37)
  1. PRILOSEC [Suspect]
     Active Substance: OMEPRAZOLE MAGNESIUM
     Indication: GASTROOESOPHAGEAL REFLUX DISEASE
     Dosage: 2-3 TIMES DAILY
     Route: 048
     Dates: start: 2006, end: 2009
  2. PRILOSEC [Suspect]
     Active Substance: OMEPRAZOLE MAGNESIUM
     Indication: RESPIRATORY DISORDER
     Dosage: 2-3 TIMES DAILY
     Route: 048
     Dates: start: 2006, end: 2009
  3. SULFAMETHOXAZOLE [Concomitant]
     Active Substance: SULFAMETHOXAZOLE
  4. PREVACID [Suspect]
     Active Substance: LANSOPRAZOLE
     Indication: GASTROOESOPHAGEAL REFLUX DISEASE
     Route: 065
     Dates: start: 20070904
  5. PREVACID [Suspect]
     Active Substance: LANSOPRAZOLE
     Indication: GASTROOESOPHAGEAL REFLUX DISEASE
     Dosage: 2- 3 TIMES DAILY
     Route: 065
     Dates: start: 2006, end: 2008
  6. FENTANYL TRANSDERMAL SYSTEM [Concomitant]
     Active Substance: FENTANYL
     Indication: PAIN
     Route: 065
     Dates: start: 2006, end: 2007
  7. MS CONTIN [Concomitant]
     Active Substance: MORPHINE SULFATE
     Indication: PAIN
     Route: 065
     Dates: start: 2006, end: 2008
  8. PRILOSEC [Suspect]
     Active Substance: OMEPRAZOLE MAGNESIUM
     Indication: GASTROOESOPHAGEAL REFLUX DISEASE
     Route: 048
     Dates: start: 2006, end: 2008
  9. PROTONIX [Suspect]
     Active Substance: PANTOPRAZOLE SODIUM
     Indication: RESPIRATORY DISORDER
     Route: 065
  10. PROTONIX [Suspect]
     Active Substance: PANTOPRAZOLE SODIUM
     Indication: GASTROOESOPHAGEAL REFLUX DISEASE
     Route: 065
     Dates: start: 2006, end: 2008
  11. LYRICA [Concomitant]
     Active Substance: PREGABALIN
     Indication: PAIN IN EXTREMITY
     Route: 065
     Dates: start: 2014
  12. IBUPROFEN. [Concomitant]
     Active Substance: IBUPROFEN
     Indication: PAIN
     Route: 065
     Dates: start: 2016
  13. OXYCODON HCL [Concomitant]
  14. PRILOSEC [Suspect]
     Active Substance: OMEPRAZOLE MAGNESIUM
     Indication: RESPIRATORY DISORDER
     Route: 048
  15. PREVACID 24 HR [Suspect]
     Active Substance: LANSOPRAZOLE
     Indication: GASTROOESOPHAGEAL REFLUX DISEASE
     Route: 065
  16. PROTONIX [Suspect]
     Active Substance: PANTOPRAZOLE SODIUM
     Indication: GASTROOESOPHAGEAL REFLUX DISEASE
     Dosage: 2-3 TIMES DAILY
     Route: 065
     Dates: start: 2006, end: 2009
  17. PROTONIX [Suspect]
     Active Substance: PANTOPRAZOLE SODIUM
     Indication: RESPIRATORY DISORDER
     Dosage: 2-3 TIMES DAILY
     Route: 065
     Dates: start: 2006, end: 2009
  18. PROTONIX [Suspect]
     Active Substance: PANTOPRAZOLE SODIUM
     Indication: RESPIRATORY DISORDER
     Route: 065
     Dates: start: 2006, end: 2008
  19. TOPAMAX [Concomitant]
     Active Substance: TOPIRAMATE
  20. AMBIEN [Concomitant]
     Active Substance: ZOLPIDEM TARTRATE
  21. PEPCID [Concomitant]
     Active Substance: FAMOTIDINE
     Route: 065
     Dates: start: 2009
  22. PRILOSEC [Suspect]
     Active Substance: OMEPRAZOLE MAGNESIUM
     Indication: GASTROOESOPHAGEAL REFLUX DISEASE
     Route: 048
  23. PRILOSEC [Suspect]
     Active Substance: OMEPRAZOLE MAGNESIUM
     Indication: RESPIRATORY DISORDER
     Route: 048
     Dates: start: 2006, end: 2008
  24. PREVACID [Suspect]
     Active Substance: LANSOPRAZOLE
     Indication: GASTROOESOPHAGEAL REFLUX DISEASE
     Route: 065
  25. PROTONIX [Suspect]
     Active Substance: PANTOPRAZOLE SODIUM
     Indication: GASTROOESOPHAGEAL REFLUX DISEASE
     Route: 065
  26. BENADRYL [Concomitant]
     Active Substance: DIPHENHYDRAMINE HYDROCHLORIDE
     Indication: PRURITUS
     Route: 065
     Dates: start: 2015
  27. ZANTAC [Concomitant]
     Active Substance: RANITIDINE HYDROCHLORIDE
     Route: 065
     Dates: start: 2009
  28. HYDROCODON [Concomitant]
     Active Substance: HYDROCODONE
  29. UNISOM SLEEPTABS [Concomitant]
     Active Substance: DOXYLAMINE SUCCINATE
     Indication: SLEEP DISORDER
     Route: 065
     Dates: start: 2016
  30. XANAX [Concomitant]
     Active Substance: ALPRAZOLAM
     Indication: ANXIETY
     Route: 065
     Dates: start: 2014
  31. PREMARIN [Concomitant]
     Active Substance: ESTROGENS, CONJUGATED
     Indication: BLOOD OESTROGEN
     Route: 065
     Dates: start: 2007
  32. SYNTHROID [Concomitant]
     Active Substance: LEVOTHYROXINE SODIUM
     Indication: THYROID GLAND INJURY
     Route: 065
     Dates: start: 2014
  33. NORCO [Concomitant]
     Active Substance: ACETAMINOPHEN\HYDROCODONE BITARTRATE
     Indication: PAIN
     Route: 065
     Dates: start: 2014
  34. ADIPEX-P [Concomitant]
     Active Substance: PHENTERMINE HYDROCHLORIDE
     Indication: WEIGHT DECREASED
     Route: 065
     Dates: start: 2006, end: 2008
  35. FLEXERIL [Concomitant]
     Active Substance: CYCLOBENZAPRINE HYDROCHLORIDE
  36. BIAXIN [Concomitant]
     Active Substance: CLARITHROMYCIN
  37. TAGAMET HB [Concomitant]
     Active Substance: CIMETIDINE
     Route: 065
     Dates: start: 2009

REACTIONS (9)
  - Pain in extremity [Not Recovered/Not Resolved]
  - Sinusitis [Not Recovered/Not Resolved]
  - Renal injury [Unknown]
  - Anxiety [Unknown]
  - Pain [Not Recovered/Not Resolved]
  - Headache [Not Recovered/Not Resolved]
  - Depression [Unknown]
  - Chronic kidney disease [Unknown]
  - Renal failure [Not Recovered/Not Resolved]

NARRATIVE: CASE EVENT DATE: 2008
